FAERS Safety Report 5941168-5 (Version None)
Quarter: 2008Q4

REPORT INFORMATION
  Report Type: 
  Country: None (occurrence: None)
  Receive Date: 20081104
  Receipt Date: 20081023
  Transmission Date: 20090506
  Serious: Yes (Other)
  Sender: FDA-Public Use
  Company Number: BR-PFIZER INC-2008090237

PATIENT
  Sex: Male
  Weight: 97 kg

DRUGS (3)
  1. FRONTAL [Suspect]
     Indication: ANXIETY
     Route: 048
     Dates: start: 20081001
  2. FRONTAL [Suspect]
     Indication: NERVOUSNESS
  3. CAPTOPRIL [Concomitant]
     Route: 065

REACTIONS (4)
  - BLOOD PRESSURE INCREASED [None]
  - DEPENDENCE [None]
  - NERVOUSNESS [None]
  - WEIGHT DECREASED [None]
